FAERS Safety Report 17054522 (Version 1)
Quarter: 2019Q4

REPORT INFORMATION
  Report Type: Spontaneous
  Country: US (occurrence: US)
  Receive Date: 20191022
  Receipt Date: 20191022
  Transmission Date: 20200122
  Serious: No
  Sender: FDA-Public Use
  Company Number: None

PATIENT
  Age: 38 Year
  Sex: Female
  Weight: 47.63 kg

DRUGS (2)
  1. TREMFYA [Suspect]
     Active Substance: GUSELKUMAB
     Indication: PSORIASIS
     Dosage: INJECT 100MG SUBCUTANEOUSLY ON WEEK 0 AND WEEK 4 AS DIRECTED
     Route: 058
     Dates: start: 201907
  2. CLOBETASOL PROP 0.05% SOLUTION 0.0005 [Suspect]
     Active Substance: CLOBETASOL PROPIONATE
     Indication: PSORIASIS
     Dosage: APPLY TO AFFECTED AREA(S) TWICE DAILY AS DIRECTED
     Route: 061
     Dates: start: 201908

REACTIONS (1)
  - Cardiac disorder [None]
